FAERS Safety Report 14417160 (Version 1)
Quarter: 2018Q1

REPORT INFORMATION
  Report Type: Report from Study
  Country: None (occurrence: US)
  Receive Date: 20180122
  Receipt Date: 20180122
  Transmission Date: 20180509
  Serious: Yes (Other)
  Sender: FDA-Public Use
  Company Number: US-ABBVIE-18S-163-2229487-00

PATIENT
  Age: 62 Year
  Sex: Female

DRUGS (1)
  1. VIEKIRA PAK [Suspect]
     Active Substance: DASABUVIR\OMBITASVIR\PARITAPREVIR\RITONAVIR
     Indication: CHRONIC HEPATITIS C
     Route: 048
     Dates: start: 20160716, end: 20161007

REACTIONS (21)
  - Deep vein thrombosis [Unknown]
  - Uterine mass [Unknown]
  - Decreased appetite [Unknown]
  - Diarrhoea [Unknown]
  - Dyspnoea [Unknown]
  - Nausea [Unknown]
  - Hyperuricaemia [Unknown]
  - Pyrexia [Unknown]
  - Pelvic pain [Unknown]
  - Abdominal pain [Unknown]
  - Constipation [Unknown]
  - Haematuria [Unknown]
  - Postmenopausal haemorrhage [Unknown]
  - Fall [Unknown]
  - Insomnia [Unknown]
  - Dyspareunia [Unknown]
  - Abnormal weight gain [Unknown]
  - Abdominal discomfort [Unknown]
  - Oedema peripheral [Unknown]
  - Abdominal distension [Unknown]
  - Fatigue [Unknown]

NARRATIVE: CASE EVENT DATE: 20160901
